FAERS Safety Report 12158809 (Version 1)
Quarter: 2016Q1

REPORT INFORMATION
  Report Type: Spontaneous
  Country: US (occurrence: US)
  Receive Date: 20160308
  Receipt Date: 20160308
  Transmission Date: 20160526
  Serious: No
  Sender: FDA-Public Use
  Company Number: US-JNJFOC-20160209374

PATIENT
  Age: 8 Year
  Sex: Female

DRUGS (5)
  1. SOLU-MEDROL [Concomitant]
     Active Substance: METHYLPREDNISOLONE SODIUM SUCCINATE
     Indication: PREMEDICATION
     Route: 042
  2. TYLENOL [Suspect]
     Active Substance: ACETAMINOPHEN
     Indication: PREMEDICATION
     Route: 048
  3. BENADRYL [Suspect]
     Active Substance: DIPHENHYDRAMINE HYDROCHLORIDE
     Indication: PREMEDICATION
     Route: 048
  4. TYLENOL [Suspect]
     Active Substance: ACETAMINOPHEN
     Route: 048
  5. INFLIXIMAB, RECOMBINANT [Concomitant]
     Active Substance: INFLIXIMAB
     Indication: PYOGENIC STERILE ARTHRITIS PYODERMA GANGRENOSUM AND ACNE SYNDROME
     Route: 042
     Dates: start: 2012

REACTIONS (2)
  - Off label use [Unknown]
  - Product use issue [Unknown]
